FAERS Safety Report 4347620-0 (Version None)
Quarter: 2004Q1

REPORT INFORMATION
  Report Type: 
  Country: None (occurrence: None)
  Receive Date: 20040325
  Receipt Date: 20040301
  Transmission Date: 20041129
  Serious: No
  Sender: FDA-Public Use
  Company Number: USA040157530

PATIENT
  Age: 55 Year
  Sex: Female
  Weight: 68 kg

DRUGS (7)
  1. FORTEO [Suspect]
     Indication: OSTEOPOROSIS
     Dosage: 20 UG/1 DAY
     Dates: start: 20040122
  2. ZITHROMAX [Concomitant]
  3. VITAMIN B NOS [Concomitant]
  4. CALCIUM [Concomitant]
  5. FISH OIL [Concomitant]
  6. MULTIVITAMIN [Concomitant]
  7. SUPPLEMENTS [Concomitant]

REACTIONS (3)
  - INJECTION SITE BURNING [None]
  - MUSCLE CRAMP [None]
  - URTICARIA [None]
